FAERS Safety Report 8163602-5 (Version None)
Quarter: 2012Q1

REPORT INFORMATION
  Report Type: 
  Country: None (occurrence: None)
  Receive Date: 20120224
  Receipt Date: 20120223
  Transmission Date: 20120608
  Serious: Yes (Death)
  Sender: FDA-Public Use
  Company Number: DK-PFIZER INC-2012023917

PATIENT
  Age: 74 Year
  Sex: Male

DRUGS (5)
  1. METOPROLOL SUCCINATE [Concomitant]
     Dosage: UNK
  2. VARENICLINE TARTRATE [Suspect]
     Dosage: UNK
     Dates: start: 20110401, end: 20110701
  3. MAGNYL ^DAK^ [Concomitant]
     Dosage: UNK
  4. NITROGLYCERIN [Concomitant]
     Dosage: UNK
  5. SYMBICORT [Concomitant]
     Dosage: UNK

REACTIONS (1)
  - CORONARY ARTERY THROMBOSIS [None]
